FAERS Safety Report 13284780 (Version 1)
Quarter: 2017Q1

REPORT INFORMATION
  Report Type: Spontaneous
  Country: US (occurrence: US)
  Receive Date: 20170301
  Receipt Date: 20170301
  Transmission Date: 20170428
  Serious: Yes (Death, Hospitalization)
  Sender: FDA-Public Use
  Company Number: None

PATIENT
  Age: 65 Year
  Sex: Male
  Weight: 116.4 kg

DRUGS (9)
  1. DOXORUBICIN HYDROCHLORIDE. [Suspect]
     Active Substance: DOXORUBICIN HYDROCHLORIDE
     Dates: end: 20170119
  2. METHOTREXATE. [Suspect]
     Active Substance: METHOTREXATE
     Dates: end: 20170119
  3. VINBLASTINE SULFATE. [Suspect]
     Active Substance: VINBLASTINE SULFATE
     Dates: end: 20170119
  4. AMLODIPINE [Concomitant]
     Active Substance: AMLODIPINE BESYLATE
  5. ASPIRIN. [Concomitant]
     Active Substance: ASPIRIN
  6. FUROSEMIDE. [Concomitant]
     Active Substance: FUROSEMIDE
  7. CISPLATIN. [Suspect]
     Active Substance: CISPLATIN
     Dates: end: 20170120
  8. ONDANSETRON [Concomitant]
     Active Substance: ONDANSETRON
  9. ATORVOSTATIN [Concomitant]
     Active Substance: ATORVASTATIN

REACTIONS (6)
  - Fatigue [None]
  - Coronary artery disease [None]
  - Cardiac failure chronic [None]
  - Dyspnoea [None]
  - Cardiac arrest [None]
  - Unresponsive to stimuli [None]

NARRATIVE: CASE EVENT DATE: 20170216
